FAERS Safety Report 9378832 (Version 5)
Quarter: 2014Q1

REPORT INFORMATION
  Report Type: Spontaneous
  Country: US (occurrence: US)
  Receive Date: 20130702
  Receipt Date: 20140127
  Transmission Date: 20141002
  Serious: Yes (Other)
  Sender: FDA-Public Use
  Company Number: US-PFIZER INC-2013193533

PATIENT
  Age: 65 Year
  Sex: Male

DRUGS (9)
  1. SUTENT [Suspect]
     Indication: NEOPLASM MALIGNANT
     Dosage: 50 MG, DAILY CYCLIC (25 MG, TAKE 2 DAILY)
     Route: 048
     Dates: start: 20130112, end: 20140117
  2. BENICAR [Concomitant]
     Dosage: UNK
  3. SIMVASTATIN [Concomitant]
     Dosage: UNK
  4. ASPIRIN [Concomitant]
     Dosage: UNK
  5. CENTRUM SILVER [Concomitant]
     Dosage: UNK
  6. GLUCOSAMINE [Concomitant]
     Dosage: UNK
  7. CHONDROITIN [Concomitant]
     Dosage: UNK
  8. ULORIC [Concomitant]
     Dosage: UNK
  9. VITAMIN D [Concomitant]
     Dosage: 400 IU, UNK

REACTIONS (6)
  - Functional gastrointestinal disorder [Unknown]
  - Stomatitis [Unknown]
  - Nasal dryness [Unknown]
  - Diarrhoea [Unknown]
  - Abdominal discomfort [Recovered/Resolved]
  - Gastrointestinal pain [Not Recovered/Not Resolved]
